FAERS Safety Report 20501234 (Version 1)
Quarter: 2022Q1

REPORT INFORMATION
  Report Type: Spontaneous
  Country: US (occurrence: None)
  Receive Date: 20220218
  Receipt Date: 20220218
  Transmission Date: 20220423
  Serious: Yes (unspecified)
  Sender: FDA-Public Use
  Company Number: None

PATIENT
  Age: 63 Year
  Sex: Female

DRUGS (2)
  1. TAXOL [Suspect]
     Active Substance: PACLITAXEL
     Dosage: OTHER FREQUENCY : ONE TIME INFUSION;?
     Route: 041
     Dates: start: 20220218, end: 20220218
  2. Diohenhydramine 25 mg IVP [Concomitant]
     Dates: start: 20220218, end: 20220218

REACTIONS (2)
  - Dry throat [None]
  - Erythema [None]

NARRATIVE: CASE EVENT DATE: 20220218
